FAERS Safety Report 4632388-0 (Version None)
Quarter: 2005Q2

REPORT INFORMATION
  Report Type: 
  Country: None (occurrence: None)
  Receive Date: 20050411
  Receipt Date: 20050407
  Transmission Date: 20051028
  Serious: Yes (Hospitalization)
  Sender: FDA-Public Use
  Company Number: FR-GLAXOSMITHKLINE-B0377208A

PATIENT
  Age: 93 Year
  Sex: Female

DRUGS (11)
  1. CLAMOXYL [Suspect]
     Indication: BACTERIAL INFECTION
     Dosage: 3G PER DAY
     Route: 048
     Dates: start: 20050208, end: 20050214
  2. MOPRAL [Suspect]
     Indication: GASTRIC ULCER
     Dosage: 40MG PER DAY
     Route: 048
     Dates: start: 20050208, end: 20050214
  3. OLMETEC [Suspect]
     Dosage: 20MG PER DAY
     Route: 048
     Dates: end: 20050214
  4. DAFALGAN [Concomitant]
     Dosage: 3G PER DAY
     Route: 048
  5. OFLOCET [Concomitant]
     Indication: BACTERIAL INFECTION
     Dosage: 200MG PER DAY
     Route: 048
     Dates: start: 20050206, end: 20050208
  6. ZECLAR [Concomitant]
     Dosage: 1G PER DAY
     Route: 048
     Dates: start: 20050208
  7. LEVOTHYROX [Concomitant]
     Dosage: 112.5MCG PER DAY
     Route: 065
  8. TARDYFERON [Concomitant]
     Route: 065
     Dates: start: 20050128
  9. DI ANTALVIC [Concomitant]
     Indication: PAIN
     Route: 065
     Dates: start: 20050128
  10. XANAX [Concomitant]
     Indication: EMOTIONAL DISORDER
     Route: 065
     Dates: start: 20050128
  11. MOVICOL [Concomitant]
     Indication: ILL-DEFINED DISORDER
     Route: 065
     Dates: start: 20050205

REACTIONS (3)
  - AZOTAEMIA [None]
  - BLOOD CREATININE INCREASED [None]
  - NEPHRITIS [None]
